FAERS Safety Report 24899211 (Version 1)
Quarter: 2025Q1

REPORT INFORMATION
  Report Type: Spontaneous
  Country: FR (occurrence: FR)
  Receive Date: 20250129
  Receipt Date: 20250129
  Transmission Date: 20250409
  Serious: Yes (Hospitalization)
  Sender: RANBAXY
  Company Number: FR-SUN PHARMACEUTICAL INDUSTRIES LTD-2025RR-490408

PATIENT
  Age: 21 Year
  Sex: Female
  Weight: 45 kg

DRUGS (4)
  1. DESLORATADINE [Suspect]
     Active Substance: DESLORATADINE
     Indication: Poisoning deliberate
     Route: 048
     Dates: start: 20241029, end: 20241029
  2. ESCITALOPRAM [Suspect]
     Active Substance: ESCITALOPRAM OXALATE
     Indication: Poisoning deliberate
     Route: 048
     Dates: start: 20241029, end: 20241029
  3. ACETAMINOPHEN\CAFFEINE [Suspect]
     Active Substance: ACETAMINOPHEN\CAFFEINE
     Indication: Poisoning deliberate
     Route: 048
     Dates: start: 20241029, end: 20241029
  4. VOGALENE [Suspect]
     Active Substance: METOPIMAZINE
     Indication: Poisoning deliberate
     Route: 048
     Dates: start: 20241029, end: 20241029

REACTIONS (3)
  - Hypotension [Recovered/Resolved]
  - Tachycardia [Recovered/Resolved]
  - Somnolence [Recovered/Resolved]

NARRATIVE: CASE EVENT DATE: 20241029
